FAERS Safety Report 7095618-4 (Version None)
Quarter: 2010Q4

REPORT INFORMATION
  Report Type: 
  Country: None (occurrence: None)
  Receive Date: 20101111
  Receipt Date: 20101103
  Transmission Date: 20110411
  Serious: Yes (Hospitalization, Other)
  Sender: FDA-Public Use
  Company Number: US-ELI_LILLY_AND_COMPANY-US201002004010

PATIENT
  Sex: Female
  Weight: 90.249 kg

DRUGS (4)
  1. BYETTA [Suspect]
     Indication: DIABETES MELLITUS
     Dosage: UNK, UNKNOWN
     Route: 065
     Dates: start: 20060401, end: 20090102
  2. METFORMIN HCL [Concomitant]
     Indication: DIABETES MELLITUS
     Dates: start: 20060101, end: 20090101
  3. LISINOPRIL HYDROCHLORTHIAZID [Concomitant]
     Dates: start: 20081101
  4. PROTON PUMP INHIBITORS [Concomitant]

REACTIONS (5)
  - CHOLECYSTITIS [None]
  - CHOLELITHIASIS [None]
  - HEPATOMEGALY [None]
  - PANCREATITIS [None]
  - RENAL DISORDER [None]
